FAERS Safety Report 9112126 (Version 1)
Quarter: 2013Q1

REPORT INFORMATION
  Report Type: Spontaneous
  Country: US (occurrence: US)
  Receive Date: 20130219
  Receipt Date: 20130219
  Transmission Date: 20140127
  Serious: No
  Sender: FDA-Public Use
  Company Number: US-BRISTOL-MYERS SQUIBB COMPANY-16647729

PATIENT
  Age: 68 Year
  Sex: Female
  Weight: 43.99 kg

DRUGS (5)
  1. ORENCIA [Suspect]
     Indication: RHEUMATOID ARTHRITIS
     Dosage: LAST INFUSION: 23MAY12, 23JUL12,
     Route: 042
     Dates: start: 201202
  2. LISINOPRIL [Suspect]
  3. METHOTREXATE [Suspect]
     Route: 058
  4. CORTISONE [Concomitant]
     Indication: PAIN
     Dosage: SHOTS
     Dates: start: 20120723
  5. VICODIN [Concomitant]

REACTIONS (11)
  - Fall [Unknown]
  - Wound infection [Not Recovered/Not Resolved]
  - Cough [Not Recovered/Not Resolved]
  - Choking sensation [Recovered/Resolved]
  - Musculoskeletal stiffness [Not Recovered/Not Resolved]
  - Nausea [Unknown]
  - Headache [Unknown]
  - Fatigue [Unknown]
  - Decreased appetite [Unknown]
  - Local swelling [Recovering/Resolving]
  - Sleep disorder [Not Recovered/Not Resolved]
